FAERS Safety Report 7693232-0 (Version None)
Quarter: 2011Q3

REPORT INFORMATION
  Report Type: 
  Country: None (occurrence: None)
  Receive Date: 20110819
  Receipt Date: 20110812
  Transmission Date: 20111222
  Serious: Yes (Hospitalization)
  Sender: FDA-Public Use
  Company Number: US-AMGEN-USACT2011041287

PATIENT
  Age: 66 Year
  Sex: Female

DRUGS (12)
  1. GABAPENTIN [Concomitant]
  2. DIGOXIN [Concomitant]
  3. LANTUS [Concomitant]
  4. NOVOLOG [Concomitant]
  5. ASPIRIN [Concomitant]
  6. PLACEBO [Suspect]
     Indication: CARDIAC FAILURE CHRONIC
     Dates: start: 20070201
  7. PLAVIX [Concomitant]
  8. MS CONTIN [Concomitant]
  9. ALLOPURINOL [Concomitant]
  10. BLINDED DARBEPOETIN ALFA [Suspect]
     Indication: CARDIAC FAILURE CHRONIC
     Dates: start: 20070201
  11. LASIX [Concomitant]
  12. NORCO [Concomitant]

REACTIONS (1)
  - MENTAL STATUS CHANGES [None]
